FAERS Safety Report 7453484-9 (Version None)
Quarter: 2011Q2

REPORT INFORMATION
  Report Type: 
  Country: None (occurrence: None)
  Receive Date: 20110502
  Receipt Date: 20110210
  Transmission Date: 20111010
  Serious: No
  Sender: FDA-Public Use
  Company Number: US-ASTRAZENECA-2011SE08197

PATIENT
  Sex: Female

DRUGS (4)
  1. PRILOSEC [Suspect]
     Indication: GASTROOESOPHAGEAL REFLUX DISEASE
     Route: 048
  2. NEXIUM [Suspect]
     Indication: GASTROOESOPHAGEAL REFLUX DISEASE
     Route: 048
  3. NEXIUM [Suspect]
     Indication: HERNIA
     Route: 048
  4. PRILOSEC [Suspect]
     Indication: HERNIA
     Route: 048

REACTIONS (3)
  - VOMITING [None]
  - HERNIA [None]
  - DRUG DOSE OMISSION [None]
